FAERS Safety Report 5480867-9 (Version None)
Quarter: 2007Q3

REPORT INFORMATION
  Report Type: 
  Country: None (occurrence: None)
  Receive Date: 20070917
  Receipt Date: 20070605
  Transmission Date: 20080115
  Serious: Yes (Hospitalization)
  Sender: FDA-Public Use
  Company Number: BDI-009677

PATIENT
  Age: 37 Year
  Sex: Male
  Weight: 91 kg

DRUGS (4)
  1. MULTIHANCE [Suspect]
     Indication: BACK PAIN
     Dosage: 18 ML IV
     Route: 042
     Dates: start: 20070507, end: 20070507
  2. MULTIHANCE [Suspect]
     Indication: NUCLEAR MAGNETIC RESONANCE IMAGING
     Dosage: 18 ML IV
     Route: 042
     Dates: start: 20070507, end: 20070507
  3. MULTIHANCE [Suspect]
     Indication: PAIN IN EXTREMITY
     Dosage: 18 ML IV
     Route: 042
     Dates: start: 20070507, end: 20070507
  4. TYLENOL [Concomitant]

REACTIONS (1)
  - HYPERSENSITIVITY [None]
